FAERS Safety Report 10268746 (Version 1)
Quarter: 2014Q2

REPORT INFORMATION
  Report Type: Spontaneous
  Country: GR (occurrence: GR)
  Receive Date: 20140630
  Receipt Date: 20140630
  Transmission Date: 20141212
  Serious: Yes (Other)
  Sender: FDA-Public Use
  Company Number: GR-SA-2014SA082241

PATIENT
  Age: 52 Year
  Sex: Male

DRUGS (5)
  1. RENVELA [Suspect]
     Indication: PRODUCT USED FOR UNKNOWN INDICATION
     Route: 065
     Dates: start: 201405, end: 201406
  2. LANTUS [Suspect]
     Indication: TYPE 1 DIABETES MELLITUS
     Route: 065
  3. NOVORAPID [Suspect]
     Indication: TYPE 1 DIABETES MELLITUS
     Route: 065
  4. TRIATEC [Concomitant]
  5. T4 [Concomitant]

REACTIONS (5)
  - Hypoglycaemia [Recovered/Resolved]
  - Dizziness [Recovered/Resolved]
  - Loss of consciousness [Recovered/Resolved]
  - Amnesia [Recovered/Resolved]
  - Muscle spasms [Recovered/Resolved]
